FAERS Safety Report 11540003 (Version 1)
Quarter: 2015Q3

REPORT INFORMATION
  Report Type: Spontaneous
  Country: JP (occurrence: JP)
  Receive Date: 20150923
  Receipt Date: 20150923
  Transmission Date: 20151125
  Serious: Yes (Other)
  Sender: FDA-Public Use
  Company Number: JP-PFIZER INC-2015313992

PATIENT
  Sex: Male

DRUGS (1)
  1. GENOTROPIN TC [Suspect]
     Active Substance: SOMATROPIN
     Indication: BLOOD GROWTH HORMONE DECREASED
     Dosage: 0.2 MG, DAILY
     Route: 058
     Dates: start: 201408, end: 2014

REACTIONS (2)
  - Haemorrhage [Unknown]
  - Dermatophytosis of nail [Unknown]
